FAERS Safety Report 7960564-8 (Version None)
Quarter: 2011Q4

REPORT INFORMATION
  Report Type: 
  Country: None (occurrence: None)
  Receive Date: 20111206
  Receipt Date: 20111124
  Transmission Date: 20120403
  Serious: Yes (Hospitalization)
  Sender: FDA-Public Use
  Company Number: JP-ROCHE-716697

PATIENT
  Sex: Female
  Weight: 50 kg

DRUGS (11)
  1. ISONIAZID [Suspect]
     Indication: PRODUCT USED FOR UNKNOWN INDICATION
     Route: 065
  2. ACTEMRA [Suspect]
     Dosage: 7 TH ADMINISTRATION
     Route: 065
  3. PLACEBO [Suspect]
     Indication: RHEUMATOID ARTHRITIS
     Dosage: INFUSION, DATE OF LAST DOSE PRIOR TO SAE: 25 SEPTEMBER 2008
     Route: 042
  4. LOXOPROFEN SODIUM [Suspect]
     Indication: PRODUCT USED FOR UNKNOWN INDICATION
     Dosage: DOSE: 120 MG/DAY
     Route: 065
  5. OCRELIZUMAB [Suspect]
     Indication: RHEUMATOID ARTHRITIS
     Dosage: DATE OF LAST DOSE PRIOR TO SAE: 02 SEPTEMBER 2009
     Route: 042
  6. ACTEMRA [Suspect]
     Route: 065
     Dates: start: 20100219, end: 20100721
  7. AZULENE SULFONATE SODIUM [Concomitant]
     Dosage: DOSE: 1 G/DAY
  8. METHOTREXATE [Suspect]
     Indication: PRODUCT USED FOR UNKNOWN INDICATION
     Dosage: DOSE: 10 MG/WEEK
     Route: 065
  9. FOLIC ACID [Concomitant]
     Dosage: DOSE: 5 MG/WEEK
  10. ACTEMRA [Suspect]
     Indication: RHEUMATOID ARTHRITIS
     Route: 065
     Dates: start: 20090127, end: 20100721
  11. PREDNISOLONE [Suspect]
     Indication: PRODUCT USED FOR UNKNOWN INDICATION
     Dosage: DOSE: 2 MG/DAY
     Route: 065

REACTIONS (1)
  - IRON DEFICIENCY ANAEMIA [None]
